FAERS Safety Report 4936027-0 (Version None)
Quarter: 2006Q1

REPORT INFORMATION
  Report Type: 
  Country: None (occurrence: None)
  Receive Date: 20060307
  Receipt Date: 20050902
  Transmission Date: 20060701
  Serious: No
  Sender: FDA-Public Use
  Company Number: US-GLAXOSMITHKLINE-A0572878A

PATIENT
  Age: 45 Year
  Sex: Female
  Weight: 79.5 kg

DRUGS (1)
  1. REQUIP [Suspect]
     Indication: RESTLESS LEGS SYNDROME
     Dosage: .5MG PER DAY
     Route: 048
     Dates: start: 20050820, end: 20050901

REACTIONS (2)
  - NIGHT SWEATS [None]
  - SEDATION [None]
